FAERS Safety Report 15601711 (Version 1)
Quarter: 2018Q4

REPORT INFORMATION
  Report Type: Spontaneous
  Country: US (occurrence: US)
  Receive Date: 20181105
  Receipt Date: 20181105
  Transmission Date: 20190205
  Serious: No
  Sender: FDA-Public Use
  Company Number: None

PATIENT
  Age: 5 Year
  Sex: Male

DRUGS (1)
  1. NORDITROPIN [Suspect]
     Active Substance: SOMATROPIN
     Indication: HYPOPITUITARISM
     Dosage: ?          OTHER DOSE:0.6MG;?
     Route: 058
     Dates: start: 20180130, end: 20180830

REACTIONS (2)
  - Tonsillar hypertrophy [None]
  - Sleep apnoea syndrome [None]

NARRATIVE: CASE EVENT DATE: 201808
